FAERS Safety Report 9878055 (Version 2)
Quarter: 2014Q1

REPORT INFORMATION
  Report Type: Spontaneous
  Country: US (occurrence: US)
  Receive Date: 20140206
  Receipt Date: 20140214
  Transmission Date: 20141002
  Serious: Yes (Hospitalization, Other)
  Sender: FDA-Public Use
  Company Number: US-BAXTER-2014BAX005509

PATIENT
  Age: 46 Year
  Sex: Female

DRUGS (2)
  1. DIANEAL LOW CALCIUM [Suspect]
     Indication: RENAL FAILURE CHRONIC
     Route: 033
     Dates: start: 201204, end: 20140124
  2. DIANEAL LOW CALCIUM [Suspect]
     Route: 033
     Dates: start: 201204, end: 20140124

REACTIONS (2)
  - Hernia [Recovering/Resolving]
  - Condition aggravated [Recovering/Resolving]
